FAERS Safety Report 4354593-3 (Version None)
Quarter: 2004Q2

REPORT INFORMATION
  Report Type: 
  Country: None (occurrence: None)
  Receive Date: 20040506
  Receipt Date: 20040506
  Transmission Date: 20050107
  Serious: No
  Sender: FDA-Public Use
  Company Number: None

PATIENT
  Sex: Male
  Weight: 100 kg

DRUGS (3)
  1. ROPINIROLE 2MG [Suspect]
     Indication: PARKINSON'S DISEASE
     Dosage: 2MG TID ORAL
     Route: 048
     Dates: start: 20040419, end: 20040504
  2. SINEMET [Concomitant]
  3. DETROL [Concomitant]

REACTIONS (1)
  - SUDDEN ONSET OF SLEEP [None]
